FAERS Safety Report 6687160-7 (Version None)
Quarter: 2010Q2

REPORT INFORMATION
  Report Type: 
  Country: None (occurrence: None)
  Receive Date: 20100415
  Receipt Date: 20100331
  Transmission Date: 20101027
  Serious: Yes (Other)
  Sender: FDA-Public Use
  Company Number: 2010SCPR000480

PATIENT
  Age: 61 Year
  Sex: Female

DRUGS (6)
  1. RANITIDINE HCL [Suspect]
     Indication: HYPERCHLORHYDRIA
     Dates: start: 20091101, end: 20100329
  2. CITALOPRAM HYDROBROMIDE [Concomitant]
  3. ATENOLOL [Concomitant]
  4. ADVAIR DISKUS 100/50 [Concomitant]
  5. PACIMOL (PARACETAMOL) [Concomitant]
  6. SINGULAIR [Concomitant]

REACTIONS (8)
  - HYPOKINESIA [None]
  - IMPAIRED WORK ABILITY [None]
  - MALAISE [None]
  - MUSCLE SPASMS [None]
  - MUSCLE TWITCHING [None]
  - PRODUCT ODOUR ABNORMAL [None]
  - PRODUCT QUALITY ISSUE [None]
  - TREMOR [None]
